FAERS Safety Report 23085201 (Version 1)
Quarter: 2023Q4

REPORT INFORMATION
  Report Type: Spontaneous
  Country: ES (occurrence: None)
  Receive Date: 20231019
  Receipt Date: 20231019
  Transmission Date: 20240110
  Serious: Yes (Other)
  Sender: FDA-Public Use
  Company Number: 2023A224693

PATIENT
  Age: 56 Year
  Sex: Female

DRUGS (3)
  1. OLAPARIB [Suspect]
     Active Substance: OLAPARIB
     Indication: Ovarian cancer
     Route: 048
     Dates: start: 201704
  2. CARBOPLATIN [Concomitant]
     Active Substance: CARBOPLATIN
     Indication: Ovarian cancer
     Dosage: SECOND CYCLE
     Dates: start: 201704
  3. GEMCITABINE [Concomitant]
     Active Substance: GEMCITABINE
     Indication: Ovarian cancer
     Dates: start: 201704

REACTIONS (1)
  - Malignant neoplasm progression [Unknown]
